FAERS Safety Report 19526018 (Version 4)
Quarter: 2022Q1

REPORT INFORMATION
  Report Type: Report from Study
  Country: EG (occurrence: EG)
  Receive Date: 20210713
  Receipt Date: 20220322
  Transmission Date: 20220424
  Serious: Yes (Life-Threatening, Hospitalization)
  Sender: FDA-Public Use
  Company Number: EG-NOVOPROD-827491

PATIENT
  Age: 7 Year
  Sex: Male
  Weight: 22 kg

DRUGS (1)
  1. NOVORAPID [Suspect]
     Active Substance: INSULIN ASPART
     Indication: Diabetes mellitus
     Dosage: 20 IU, QD (STARTED 4 YEARS AGO)
     Route: 058

REACTIONS (3)
  - Diabetic ketoacidotic hyperglycaemic coma [Recovered/Resolved]
  - Device failure [Unknown]
  - Device malfunction [Unknown]
